FAERS Safety Report 5048822-0 (Version None)
Quarter: 2006Q3

REPORT INFORMATION
  Report Type: 
  Country: None (occurrence: None)
  Receive Date: 20060706
  Receipt Date: 20060629
  Transmission Date: 20061208
  Serious: Yes (Hospitalization)
  Sender: FDA-Public Use
  Company Number: HQWYE488829JUN06

PATIENT
  Age: 77 Year
  Sex: Female

DRUGS (6)
  1. CORDARONE [Suspect]
     Indication: TACHYARRHYTHMIA
     Dosage: SEE IMAGE
     Route: 048
     Dates: start: 20031101, end: 20040901
  2. CORDARONE [Suspect]
     Indication: TACHYARRHYTHMIA
     Dosage: SEE IMAGE
     Route: 048
     Dates: start: 20040901, end: 20060301
  3. WARFARIN SODIUM [Concomitant]
  4. XALATAN [Concomitant]
  5. TIMOSINE (TIMOLOL MALEATE) [Concomitant]
  6. ZOPICLONE (ZOPICLONE) [Concomitant]

REACTIONS (2)
  - DYSURIA [None]
  - PNEUMONITIS [None]
